FAERS Safety Report 17180822 (Version 1)
Quarter: 2019Q4

REPORT INFORMATION
  Report Type: Spontaneous
  Country: GR (occurrence: GR)
  Receive Date: 20191219
  Receipt Date: 20191219
  Transmission Date: 20200122
  Serious: Yes (Death, Life-Threatening, Other)
  Sender: FDA-Public Use
  Company Number: GR-HONG KONG KING-FRIEND INDUSTRIAL COMPANY-2019NKF00036

PATIENT
  Age: 50 Year
  Sex: Male

DRUGS (10)
  1. BIVALIRUDIN. [Suspect]
     Active Substance: BIVALIRUDIN
     Dosage: 1.75 MG/KG, CONTINUOUS/HR
     Route: 013
  2. ASPIRIN. [Suspect]
     Active Substance: ASPIRIN
     Indication: CORONARY ARTERY DISEASE
     Route: 065
  3. VALSARTAN. [Suspect]
     Active Substance: VALSARTAN
     Indication: CORONARY ARTERY DISEASE
     Route: 065
  4. MONONITRITE ISOSORBITE [Suspect]
     Active Substance: ISOSORBIDE MONONITRATE
     Indication: CORONARY ARTERY DISEASE
     Route: 065
  5. ATORVASTATIN [Suspect]
     Active Substance: ATORVASTATIN
     Indication: CORONARY ARTERY DISEASE
     Route: 065
  6. HEPARIN SODIUM. [Suspect]
     Active Substance: HEPARIN SODIUM
     Dosage: 50 IU, ONCE
     Route: 013
  7. CLOPIDOGREL [Suspect]
     Active Substance: CLOPIDOGREL BISULFATE
     Indication: CORONARY ARTERY DISEASE
     Route: 065
  8. METOPROLOL. [Suspect]
     Active Substance: METOPROLOL
     Indication: CORONARY ARTERY DISEASE
     Route: 065
  9. HEPARIN SODIUM. [Suspect]
     Active Substance: HEPARIN SODIUM
     Dosage: (UP TO 4 TIMES IN CONJUNCTION WITH ROUTINE CORONARY ANGIOGRAPHIES)
     Route: 013
  10. BIVALIRUDIN. [Suspect]
     Active Substance: BIVALIRUDIN
     Dosage: 0.75 MG/KG, ONCE (BOLUS)
     Route: 042

REACTIONS (4)
  - Vascular stent thrombosis [Fatal]
  - Ventricular fibrillation [Unknown]
  - Kounis syndrome [Fatal]
  - Cardiac arrest [Recovered/Resolved]
